FAERS Safety Report 24780640 (Version 1)
Quarter: 2024Q4

REPORT INFORMATION
  Report Type: Spontaneous
  Country: FR (occurrence: FR)
  Receive Date: 20241227
  Receipt Date: 20241227
  Transmission Date: 20250115
  Serious: Yes (Hospitalization, Other)
  Sender: AUROBINDO
  Company Number: FR-AFSSAPS-TS2024001484

PATIENT
  Age: 73 Year
  Sex: Male

DRUGS (4)
  1. AMOXICILLIN [Suspect]
     Active Substance: AMOXICILLIN
     Indication: Peritonitis
     Dosage: UNK
     Route: 042
     Dates: start: 20241026, end: 20241106
  2. CIPROFLOXACIN [Suspect]
     Active Substance: CIPROFLOXACIN
     Indication: Peritonitis
     Dosage: UNK
     Route: 042
     Dates: start: 20241026, end: 20241106
  3. VANCOMYCIN [Concomitant]
     Active Substance: VANCOMYCIN
     Indication: Peritonitis
     Dosage: UNK
     Route: 033
     Dates: start: 20241026, end: 20241026
  4. GENTAMICIN [Concomitant]
     Active Substance: GENTAMICIN
     Indication: Peritonitis
     Dosage: UNK
     Route: 033
     Dates: start: 20241026, end: 20241026

REACTIONS (1)
  - Drug reaction with eosinophilia and systemic symptoms [Recovering/Resolving]

NARRATIVE: CASE EVENT DATE: 20241112
